FAERS Safety Report 25867975 (Version 1)
Quarter: 2025Q4

REPORT INFORMATION
  Report Type: Spontaneous
  Country: CA (occurrence: CA)
  Receive Date: 20251001
  Receipt Date: 20251001
  Transmission Date: 20260118
  Serious: Yes (Life-Threatening, Hospitalization, Other)
  Sender: AUROBINDO
  Company Number: CA-AUROBINDO-AUR-APL-2025-049421

PATIENT
  Age: 4 Year
  Sex: Male

DRUGS (12)
  1. AMOXICILLIN [Suspect]
     Active Substance: AMOXICILLIN
     Indication: Otitis media
     Route: 065
  2. RUPATADINE [Suspect]
     Active Substance: RUPATADINE
     Indication: Rash pruritic
     Dosage: UNK
     Route: 065
  3. RUPATADINE [Suspect]
     Active Substance: RUPATADINE
     Dosage: 10 MILLIGRAM
     Route: 048
  4. CETIRIZINE [Suspect]
     Active Substance: CETIRIZINE HYDROCHLORIDE
     Indication: Rash pruritic
     Dosage: 5 MILLIGRAM, ONCE A DAY
     Route: 065
  5. CETIRIZINE [Suspect]
     Active Substance: CETIRIZINE HYDROCHLORIDE
     Indication: Angioedema
  6. PREDNISOLONE [Suspect]
     Active Substance: PREDNISOLONE
     Indication: Rash pruritic
     Dosage: 1 MILLIGRAM/KILOGRAM
     Route: 048
  7. PREDNISOLONE [Suspect]
     Active Substance: PREDNISOLONE
     Indication: Angioedema
  8. AMOXICILLIN TRIHYDRATE [Concomitant]
     Active Substance: AMOXICILLIN
     Indication: Otitis media
     Dosage: UNK
     Route: 065
  9. CALCIUM CHLORIDE [Concomitant]
     Active Substance: CALCIUM CHLORIDE
     Indication: Vehicle solution use
     Dosage: 70 MILLILITER
     Route: 042
  10. CALCIUM CHLORIDE [Concomitant]
     Active Substance: CALCIUM CHLORIDE
     Dosage: 500 MILLILITER
     Route: 042
  11. EPINEPHRINE [Concomitant]
     Active Substance: EPINEPHRINE
     Indication: Serum sickness-like reaction
     Dosage: 0.15 MILLIGRAM
     Route: 030
  12. PREDNISONE [Concomitant]
     Active Substance: PREDNISONE
     Indication: Angioedema
     Dosage: 1 MILLIGRAM/KILOGRAM
     Route: 048

REACTIONS (5)
  - Angioedema [Recovered/Resolved]
  - Disease progression [Recovered/Resolved]
  - Serum sickness-like reaction [Recovered/Resolved]
  - Drug ineffective [Recovered/Resolved]
  - Overdose [Recovered/Resolved]
